FAERS Safety Report 5950360-5 (Version None)
Quarter: 2008Q4

REPORT INFORMATION
  Report Type: 
  Country: None (occurrence: None)
  Receive Date: 20081112
  Receipt Date: 20081105
  Transmission Date: 20090506
  Serious: Yes (Hospitalization, Other)
  Sender: FDA-Public Use
  Company Number: PHHY2008BR27523

PATIENT
  Age: 23 Year
  Sex: Male
  Weight: 68 kg

DRUGS (4)
  1. TEGRETOL [Suspect]
     Indication: CONVULSION
     Dosage: 2 TABLETS DAILY
  2. TEGRETOL [Suspect]
     Dosage: 200 MG, ONE AND HAL TABLET IN THE  MORNIND AND ONE AND HALF AT NIGHT
  3. TEGRETOL [Suspect]
     Dosage: 400 MG 4 TABLETS DAILY
  4. TEGRETOL [Suspect]
     Dosage: 200 MG TWO TIMES DAILY

REACTIONS (9)
  - BRAIN NEOPLASM [None]
  - CONVULSION [None]
  - CYANOSIS [None]
  - DYSPNOEA [None]
  - HEADACHE [None]
  - LOSS OF CONSCIOUSNESS [None]
  - MEMORY IMPAIRMENT [None]
  - NERVOUSNESS [None]
  - TREMOR [None]
